FAERS Safety Report 9885528 (Version 2)
Quarter: 2014Q1

REPORT INFORMATION
  Report Type: Spontaneous
  Country: US (occurrence: US)
  Receive Date: 20140210
  Receipt Date: 20140224
  Transmission Date: 20141002
  Serious: No
  Sender: FDA-Public Use
  Company Number: US-PFIZER INC-2014034946

PATIENT
  Age: 67 Year
  Sex: Male

DRUGS (13)
  1. SUTENT [Suspect]
     Indication: RENAL CANCER
     Dosage: 12.5 MG, UNK
     Dates: start: 20131228
  2. SUTENT [Suspect]
     Dosage: 12.5 MG AND 25 MG
     Dates: start: 20140117
  3. ALLOPURINOL [Concomitant]
     Dosage: UNK
  4. CARAFATE [Concomitant]
     Dosage: UNK
  5. DEXAMETHASONE [Concomitant]
     Dosage: UNK
  6. ENALAPRIL MALEATE [Concomitant]
     Dosage: UNK
  7. IMODIUM A-D [Concomitant]
     Dosage: UNK
  8. LEVOTHYROXINE SODIUM [Concomitant]
     Dosage: UNK
  9. MAGNESIUM GLUCONATE [Concomitant]
     Dosage: UNK
  10. ONDANSETRON [Concomitant]
     Dosage: UNK
  11. OMEGA 3 [Concomitant]
     Dosage: UNK
  12. PANTOPRAZOLE SODIUM [Concomitant]
     Dosage: UNK
  13. NEXIUM [Concomitant]
     Dosage: UNK

REACTIONS (2)
  - Palpitations [Unknown]
  - Diarrhoea [Unknown]
